FAERS Safety Report 7390894-2 (Version None)
Quarter: 2011Q2

REPORT INFORMATION
  Report Type: 
  Country: None (occurrence: None)
  Receive Date: 20110404
  Receipt Date: 20110325
  Transmission Date: 20111010
  Serious: No
  Sender: FDA-Public Use
  Company Number: US-BIOGENIDEC-2011BI011162

PATIENT
  Sex: Female

DRUGS (1)
  1. AVONEX [Suspect]
     Indication: MULTIPLE SCLEROSIS
     Route: 030
     Dates: start: 20070111

REACTIONS (5)
  - ASTHMA [None]
  - VISION BLURRED [None]
  - HYPOACUSIS [None]
  - PYREXIA [None]
  - OROPHARYNGEAL PAIN [None]
